FAERS Safety Report 8523068-X (Version None)
Quarter: 2012Q3

REPORT INFORMATION
  Report Type: 
  Country: None (occurrence: None)
  Receive Date: 20120720
  Receipt Date: 20110617
  Transmission Date: 20120928
  Serious: Yes (Hospitalization)
  Sender: FDA-Public Use
  Company Number: US-BAYER-201013378NA

PATIENT
  Age: 26 Year
  Sex: Female
  Weight: 100 kg

DRUGS (19)
  1. NEXIUM [Concomitant]
     Indication: DYSPEPSIA
     Dosage: AS USED DOSE: UNK
     Route: 065
     Dates: start: 20060101, end: 20090615
  2. OTHER ANTIMYCOTICS FOR SYSTEMIC USE [Concomitant]
     Dosage: AS USED DOSE: UNK
  3. YAZ [Suspect]
     Indication: CONTRACEPTION
     Route: 048
     Dates: start: 20080814, end: 20090822
  4. ADVIL [Concomitant]
     Indication: PRODUCT USED FOR UNKNOWN INDICATION
     Dosage: AS USED DOSE: UNK
     Route: 065
  5. LOVENOX [Concomitant]
     Indication: PRODUCT USED FOR UNKNOWN INDICATION
     Dosage: AS USED DOSE: UNK
  6. MERREM [Concomitant]
     Indication: PRODUCT USED FOR UNKNOWN INDICATION
     Dosage: AS USED DOSE: UNK
  7. VANCOMYCIN [Concomitant]
     Indication: PRODUCT USED FOR UNKNOWN INDICATION
     Dosage: AS USED DOSE: UNK
  8. OTHER ANTIMYCOTICS FOR SYSTEMIC USE [Concomitant]
     Dosage: AS USED DOSE: UNK
  9. VICODIN [Concomitant]
     Dosage: AS USED DOSE: UNK
  10. OXYCET [Concomitant]
     Dosage: AS USED DOSE: UNK
  11. DILAUDID [Concomitant]
     Indication: PRODUCT USED FOR UNKNOWN INDICATION
     Dosage: AS USED DOSE: UNK
  12. LORTAB [Concomitant]
     Indication: PRODUCT USED FOR UNKNOWN INDICATION
     Dosage: AS USED DOSE: UNK
  13. LASIX [Concomitant]
     Indication: PRODUCT USED FOR UNKNOWN INDICATION
     Dosage: AS USED DOSE: UNK
  14. PHENERGAN HCL [Concomitant]
     Indication: PRODUCT USED FOR UNKNOWN INDICATION
     Dosage: AS USED DOSE: UNK
  15. PHENAZOPYRIDINE HCL TAB [Concomitant]
     Indication: DYSURIA
     Dosage: AS USED DOSE: UNK
  16. OTHER ANTIMYCOTICS FOR SYSTEMIC USE [Concomitant]
     Indication: PRODUCT USED FOR UNKNOWN INDICATION
     Dosage: AS USED DOSE: UNK
  17. PERCOCET [Concomitant]
     Indication: PAIN
     Dosage: AS USED DOSE: UNK
  18. YASMIN [Suspect]
     Indication: CONTRACEPTION
     Route: 048
     Dates: start: 20030101, end: 20080628
  19. ZITHROMAX [Concomitant]
     Indication: PRODUCT USED FOR UNKNOWN INDICATION
     Dosage: AS USED DOSE: UNK
     Route: 065

REACTIONS (2)
  - CHOLECYSTITIS [None]
  - CHOLELITHIASIS [None]
